FAERS Safety Report 7852372-3 (Version None)
Quarter: 2011Q3

REPORT INFORMATION
  Report Type: 
  Country: None (occurrence: None)
  Receive Date: 20110906
  Receipt Date: 20110630
  Transmission Date: 20111222
  Serious: No
  Sender: FDA-Public Use
  Company Number: 201105011

PATIENT
  Age: 80 Year
  Sex: Male

DRUGS (3)
  1. XIAFLEX [Suspect]
     Indication: DUPUYTREN'S CONTRACTURE
     Dosage: 0.58 MG, 1 IN 1 D, INTRALESIONAL
     Route: 026
     Dates: start: 20110427, end: 20110427
  2. HYDROCHLOROTHIAZIDE [Concomitant]
  3. ANESTHETICS, LOCAL (ANESTHETICS, LOCAL) [Suspect]
     Dosage: INJECTION
     Dates: start: 20110428, end: 20110428

REACTIONS (3)
  - OEDEMA PERIPHERAL [None]
  - AXILLARY PAIN [None]
  - CONTUSION [None]
